FAERS Safety Report 10709101 (Version 1)
Quarter: 2015Q1

REPORT INFORMATION
  Report Type: Spontaneous
  Country: DE (occurrence: DE)
  Receive Date: 20150114
  Receipt Date: 20150114
  Transmission Date: 20150721
  Serious: Yes (Other)
  Sender: FDA-Public Use
  Company Number: DE-RANBAXY-2006RR-02259

PATIENT
  Age: 41 Year
  Sex: Male

DRUGS (1)
  1. IBUPROFEN. [Suspect]
     Active Substance: IBUPROFEN
     Indication: MUSCULOSKELETAL PAIN
     Dosage: 400 MG, TID
     Route: 065

REACTIONS (4)
  - Visual evoked potentials abnormal [Recovering/Resolving]
  - Optic neuritis [Recovering/Resolving]
  - Visual field defect [Recovering/Resolving]
  - Visual acuity reduced [Recovering/Resolving]
